FAERS Safety Report 4519182-6 (Version None)
Quarter: 2004Q4

REPORT INFORMATION
  Report Type: 
  Country: None (occurrence: None)
  Receive Date: 20041206
  Receipt Date: 20041130
  Transmission Date: 20050328
  Serious: Yes (Life-Threatening)
  Sender: FDA-Public Use
  Company Number: AU-ROCHE-388074

PATIENT
  Age: 32 Year
  Sex: Female
  Weight: 90 kg

DRUGS (2)
  1. VALIUM [Suspect]
     Indication: PANIC ATTACK
     Route: 065
     Dates: start: 20011106
  2. STILNOX [Suspect]
     Indication: PANIC ATTACK
     Route: 065
     Dates: start: 20011106

REACTIONS (2)
  - AMNESIA [None]
  - ROAD TRAFFIC ACCIDENT [None]
